FAERS Safety Report 6125416-7 (Version None)
Quarter: 2009Q1

REPORT INFORMATION
  Report Type: 
  Country: None (occurrence: None)
  Receive Date: 20090319
  Receipt Date: 20090319
  Transmission Date: 20090719
  Serious: No
  Sender: FDA-Public Use
  Company Number: None

PATIENT
  Age: 83 Year
  Sex: Female
  Weight: 68.0396 kg

DRUGS (1)
  1. KLOR-CON M10 [Suspect]
     Indication: HYPOKALAEMIA
     Dosage: 10 MEQ TID PO
     Route: 048
     Dates: start: 20080910, end: 20090318

REACTIONS (1)
  - MEDICATION RESIDUE [None]
